FAERS Safety Report 19521944 (Version 4)
Quarter: 2021Q3

REPORT INFORMATION
  Report Type: Report from Study
  Country: CO (occurrence: CO)
  Receive Date: 20210712
  Receipt Date: 20210928
  Transmission Date: 20211014
  Serious: Yes (Life-Threatening, Hospitalization)
  Sender: FDA-Public Use
  Company Number: NVSC2020CO218873

PATIENT
  Sex: Male

DRUGS (1)
  1. VOTRIENT [Suspect]
     Active Substance: PAZOPANIB HYDROCHLORIDE
     Indication: METASTATIC RENAL CELL CARCINOMA
     Dosage: 800 MG, QD (ONCE DAILY)
     Route: 048
     Dates: start: 20190501

REACTIONS (16)
  - Renal cell carcinoma recurrent [Unknown]
  - Pneumonia [Unknown]
  - Vomiting [Unknown]
  - General physical health deterioration [Unknown]
  - Hiccups [Unknown]
  - Headache [Unknown]
  - Dehydration [Unknown]
  - Decreased appetite [Unknown]
  - Diarrhoea [Unknown]
  - Gait disturbance [Unknown]
  - Cachexia [Unknown]
  - Fatigue [Unknown]
  - Nausea [Unknown]
  - Pallor [Unknown]
  - Speech disorder [Unknown]
  - Ill-defined disorder [Unknown]
